FAERS Safety Report 18293419 (Version 1)
Quarter: 2020Q3

REPORT INFORMATION
  Report Type: Report from Study
  Country: NL (occurrence: NL)
  Receive Date: 20200922
  Receipt Date: 20200922
  Transmission Date: 20201103
  Serious: Yes (Congenital Anomaly)
  Sender: FDA-Public Use
  Company Number: NL-TEVA-2020-NL-1829006

PATIENT
  Age: 0 Day
  Sex: Female

DRUGS (6)
  1. VALACICLOVIR TABLET 250MG / BRAND NAME NOT SPECIFIED [Suspect]
     Active Substance: VALACYCLOVIR HYDROCHLORIDE
     Dosage: DOSAGE UNKNOWN:THERAPY END DATE :ASKED BUT UNKNOWN
     Dates: start: 201410
  2. ALGINEZUUR/NATRIUMWATERSTOFCARBON SUSP 50/27MG/ML / GAVISCON ANIJS SUS [Concomitant]
     Dosage: DOSAGE UNKNOWN
     Dates: start: 201505, end: 20150613
  3. MULTIVITAMINEN [Concomitant]
     Dosage: DOSE, DOSAGE UNKNOWN:THERAPY START DATE:ASKED BUT UNKNOWN:THERAPY END DATE :ASKED BUT UNKNOWN
  4. FOLIUMZUUR / BRAND NAME NOT SPECIFIED [Concomitant]
     Dosage: DOSE, DOSAGE UNKNOWN:THERAPY START DATE:ASKED BUT UNKNOWN:THERAPY END DATE :ASKED BUT UNKNOWN
  5. CALCIUMCARBONAAT/MAGNESIUMSUBCARBONAAT KAUWTABLET / RENNIE ANIJS KAUWT [Concomitant]
     Dosage: DOSAGE UNKNOWN:THERAPY END DATE :ASKED BUT UNKNOWN
     Dates: start: 201504
  6. MACROGOL/ZOUTEN PDR V DRANK (MOVIC/MOLAX/LAXT/GEN) / MOVICOLON POEDER [Concomitant]
     Dosage: DOSE, DOSAGE UNKNOWN:THERAPY END DATE :ASKED BUT UNKNOWN
     Dates: start: 201410

REACTIONS (2)
  - Congenital pyelocaliectasis [Unknown]
  - Congenital hydronephrosis [Unknown]

NARRATIVE: CASE EVENT DATE: 20150613
